FAERS Safety Report 24328479 (Version 1)
Quarter: 2024Q3

REPORT INFORMATION
  Report Type: Spontaneous
  Country: GB (occurrence: GB)
  Receive Date: 20240917
  Receipt Date: 20240917
  Transmission Date: 20241017
  Serious: Yes (Hospitalization)
  Sender: VERTEX
  Company Number: GB-VERTEX PHARMACEUTICALS-2024-014500

PATIENT
  Sex: Male

DRUGS (3)
  1. ELEXACAFTOR\IVACAFTOR\TEZACAFTOR [Suspect]
     Active Substance: ELEXACAFTOR\IVACAFTOR\TEZACAFTOR
     Indication: Cystic fibrosis
     Dosage: 2 TABS (37.5 MG IVA/ 25 MG TEZA/ 50 MG ELEXA) IN AM
     Route: 048
  2. KALYDECO [Suspect]
     Active Substance: IVACAFTOR
     Indication: Cystic fibrosis
     Dosage: 1 TAB (75 MG) IN PM
     Route: 048
  3. PULMOZYME [Concomitant]
     Active Substance: DORNASE ALFA
     Dosage: UNK

REACTIONS (1)
  - Hospitalisation [Unknown]
